FAERS Safety Report 10553241 (Version 2)
Quarter: 2018Q3

REPORT INFORMATION
  Report Type: Report from Study
  Country: IT (occurrence: IT)
  Receive Date: 20141030
  Receipt Date: 20180813
  Transmission Date: 20181010
  Serious: Yes (Hospitalization)
  Sender: FDA-Public Use
  Company Number: IT-ROCHE-1482136

PATIENT
  Age: 66 Year
  Sex: Male
  Weight: 130 kg

DRUGS (12)
  1. BEVACIZUMAB. [Suspect]
     Active Substance: BEVACIZUMAB
     Indication: COLORECTAL CANCER METASTATIC
     Dosage: DATE OF LAST DOSE PRIOR TO SAE 20/OCT/2014
     Route: 042
     Dates: start: 20141006
  2. CARDIOASPIRIN [Concomitant]
     Active Substance: ASPIRIN
     Route: 065
     Dates: start: 2011
  3. ZESTRIL [Concomitant]
     Active Substance: LISINOPRIL
  4. PORTOLAC [Concomitant]
     Active Substance: LACTITOL
     Dosage: 2 CUP
     Route: 065
  5. TIMOPTOL [Concomitant]
     Active Substance: TIMOLOL
     Dosage: 1 DROP
     Route: 065
  6. TAVOR (LORAZEPAM) [Concomitant]
     Active Substance: LORAZEPAM
  7. AMLODIPIN [Concomitant]
     Active Substance: AMLODIPINE BESYLATE
  8. ZIRTEC [Concomitant]
     Active Substance: CETIRIZINE HYDROCHLORIDE
     Dosage: AS NEEDED
     Route: 065
  9. OXALIPLATIN. [Suspect]
     Active Substance: OXALIPLATIN
     Indication: COLORECTAL CANCER METASTATIC
     Dosage: DATE OF LAST DOSE PRIOR TO SAE 20/OCT/2014
     Route: 042
     Dates: start: 20141006
  10. FLUOROURACIL. [Suspect]
     Active Substance: FLUOROURACIL
     Indication: COLORECTAL CANCER METASTATIC
     Dosage: DATE OF LAST DOSE PRIOR TO SAE 20/OCT/2014
     Route: 042
     Dates: start: 20141006
  11. IBUPROFEN. [Concomitant]
     Active Substance: IBUPROFEN
     Dosage: AS NEEDED
     Route: 065
  12. ZESTORETIC [Concomitant]
     Active Substance: HYDROCHLOROTHIAZIDE\LISINOPRIL
     Route: 065
     Dates: start: 201401

REACTIONS (1)
  - Atrial fibrillation [Recovered/Resolved]

NARRATIVE: CASE EVENT DATE: 20141023
